FAERS Safety Report 10768824 (Version 1)
Quarter: 2015Q1

REPORT INFORMATION
  Report Type: Spontaneous
  Country: DK (occurrence: None)
  Receive Date: 20150204
  Receipt Date: 20150204
  Transmission Date: 20150721
  Serious: Yes (Hospitalization)
  Sender: FDA-Public Use
  Company Number: ABR_01963_2015

PATIENT
  Age: 42 Year
  Sex: Male

DRUGS (2)
  1. HJERTEMAGNYL /01043701/ [Concomitant]
  2. NITROLINGUAL [Suspect]
     Active Substance: NITROGLYCERIN
     Indication: CHEST PAIN
     Route: 060
     Dates: start: 20141220, end: 20141220

REACTIONS (4)
  - Arrhythmia [None]
  - Blood pressure decreased [None]
  - Bradycardia [None]
  - Nodal rhythm [None]

NARRATIVE: CASE EVENT DATE: 20141220
